FAERS Safety Report 18470661 (Version 2)
Quarter: 2023Q4

REPORT INFORMATION
  Report Type: Spontaneous
  Country: US (occurrence: US)
  Receive Date: 20201106
  Receipt Date: 20231118
  Transmission Date: 20240110
  Serious: Yes (Life-Threatening, Hospitalization, Other)
  Sender: FDA-Public Use
  Company Number: US-MLMSERVICE-20201019-2535137-1

PATIENT
  Age: 62 Year
  Sex: Female

DRUGS (3)
  1. BUPROPION HYDROCHLORIDE [Suspect]
     Active Substance: BUPROPION HYDROCHLORIDE
     Indication: Anxiety
     Dosage: UNK
     Route: 065
  2. TRAZODONE [Suspect]
     Active Substance: TRAZODONE HYDROCHLORIDE
     Indication: Serotonin syndrome
     Dosage: UNK
     Route: 065
  3. TRAMADOL [Suspect]
     Active Substance: TRAMADOL\TRAMADOL HYDROCHLORIDE
     Indication: Serotonin syndrome
     Dosage: UNK
     Route: 065

REACTIONS (3)
  - Serotonin syndrome [Recovering/Resolving]
  - Shock [Recovering/Resolving]
  - Off label use [Unknown]
